FAERS Safety Report 25745836 (Version 2)
Quarter: 2025Q3

REPORT INFORMATION
  Report Type: Spontaneous
  Country: AU (occurrence: AU)
  Receive Date: 20250901
  Receipt Date: 20250909
  Transmission Date: 20251021
  Serious: Yes (Hospitalization, Disabling, Other)
  Sender: REGENERON
  Company Number: AU-BAYER-2025A109854

PATIENT
  Sex: Female

DRUGS (1)
  1. EYLEA [Suspect]
     Active Substance: AFLIBERCEPT
     Indication: Age-related macular degeneration
     Route: 031
     Dates: start: 20250626

REACTIONS (6)
  - Blindness unilateral [Unknown]
  - Delirium [Unknown]
  - Endophthalmitis [Not Recovered/Not Resolved]
  - Visual impairment [Unknown]
  - Ocular hyperaemia [Unknown]
  - Product storage error [Unknown]

NARRATIVE: CASE EVENT DATE: 20250712
